FAERS Safety Report 4941150-0 (Version None)
Quarter: 2006Q1

REPORT INFORMATION
  Report Type: 
  Country: None (occurrence: None)
  Receive Date: 20060313
  Receipt Date: 20060303
  Transmission Date: 20060701
  Serious: Yes (Other)
  Sender: FDA-Public Use
  Company Number: IT-GLAXOSMITHKLINE-B0415455A

PATIENT
  Age: 65 Year
  Sex: Male

DRUGS (6)
  1. AVANDIA [Suspect]
     Dosage: 8MG PER DAY
     Route: 048
     Dates: start: 20060112, end: 20060203
  2. AMLODIPINE [Concomitant]
     Route: 048
  3. ASPIRIN [Concomitant]
     Route: 048
  4. ENALAPRIL MALEATE [Concomitant]
     Route: 048
  5. GLIBENCLAMIDE + METFORMIN [Concomitant]
     Route: 048
  6. AMILORIDE HCL AND HYDROCHLOROTHIAZIDE [Concomitant]
     Route: 048

REACTIONS (3)
  - CHEST PAIN [None]
  - HYPERTENSIVE CRISIS [None]
  - OEDEMA PERIPHERAL [None]
